FAERS Safety Report 18991651 (Version 1)
Quarter: 2021Q1

REPORT INFORMATION
  Report Type: Spontaneous
  Country: US (occurrence: US)
  Receive Date: 20210310
  Receipt Date: 20210310
  Transmission Date: 20210420
  Serious: No
  Sender: FDA-Public Use
  Company Number: US-TEVA-2021-US-1888571

PATIENT
  Age: 55 Year
  Sex: Male

DRUGS (15)
  1. ATOVASTATIN [Concomitant]
     Active Substance: ATORVASTATIN
  2. SPIRVA [Concomitant]
  3. FLOVENT [Concomitant]
     Active Substance: FLUTICASONE PROPIONATE
  4. METFORMIN [Concomitant]
     Active Substance: METFORMIN HYDROCHLORIDE
  5. TAMSULOSIN [Concomitant]
     Active Substance: TAMSULOSIN
  6. TOPIRAMATE. [Concomitant]
     Active Substance: TOPIRAMATE
  7. ASPIRIN. [Concomitant]
     Active Substance: ASPIRIN
  8. COENZYME Q10 [Concomitant]
     Active Substance: DIETARY SUPPLEMENT\UBIDECARENONE
  9. FLUTICASONE. [Concomitant]
     Active Substance: FLUTICASONE
  10. QUETIAPINE. [Concomitant]
     Active Substance: QUETIAPINE
  11. COPAXONE [Suspect]
     Active Substance: GLATIRAMER ACETATE
     Indication: MULTIPLE SCLEROSIS
     Dosage: 20 MILLIGRAM DAILY;
     Route: 058
     Dates: start: 20190219
  12. PROAIR HFA [Concomitant]
     Active Substance: ALBUTEROL SULFATE
  13. GABAPENTIN. [Concomitant]
     Active Substance: GABAPENTIN
  14. GLIPIZIDE. [Concomitant]
     Active Substance: GLIPIZIDE
  15. TIZANIDINE. [Concomitant]
     Active Substance: TIZANIDINE

REACTIONS (1)
  - Muscle spasms [Not Recovered/Not Resolved]

NARRATIVE: CASE EVENT DATE: 202103
